FAERS Safety Report 20862850 (Version 1)
Quarter: 2022Q2

REPORT INFORMATION
  Report Type: Spontaneous
  Country: US (occurrence: None)
  Receive Date: 20220523
  Receipt Date: 20220523
  Transmission Date: 20220721
  Serious: Yes (Hospitalization)
  Sender: FDA-Public Use
  Company Number: None

PATIENT
  Sex: Male

DRUGS (1)
  1. MIGLUSTAT [Suspect]
     Active Substance: MIGLUSTAT
     Indication: Niemann-Pick disease
     Dosage: OTHER QUANTITY : 1 CAPSULE;?FREQUENCY : TWICE A DAY;?
     Route: 048
     Dates: start: 20200520

REACTIONS (1)
  - Pneumonia [None]
